FAERS Safety Report 15762760 (Version 1)
Quarter: 2018Q4

REPORT INFORMATION
  Report Type: Spontaneous
  Country: BE (occurrence: BE)
  Receive Date: 20181226
  Receipt Date: 20181226
  Transmission Date: 20190205
  Serious: Yes (Death, Other)
  Sender: FDA-Public Use
  Company Number: PHHY2018BE194933

PATIENT
  Age: 4 Day
  Sex: Female

DRUGS (2)
  1. OLANZAPINE. [Suspect]
     Active Substance: OLANZAPINE
     Indication: FOETAL EXPOSURE DURING PREGNANCY
     Dosage: PATERNAL DOSE: 10 MG QD
     Route: 050
  2. AUBAGIO [Suspect]
     Active Substance: TERIFLUNOMIDE
     Indication: FOETAL EXPOSURE DURING PREGNANCY
     Dosage: PATERNAL DOSE: 10 MG QD
     Route: 048

REACTIONS (2)
  - Alveolar capillary dysplasia [Fatal]
  - Paternal exposure timing unspecified [Fatal]
